FAERS Safety Report 7800810-4 (Version None)
Quarter: 2011Q4

REPORT INFORMATION
  Report Type: 
  Country: None (occurrence: None)
  Receive Date: 20111006
  Receipt Date: 20111001
  Transmission Date: 20120403
  Serious: Yes (Hospitalization, Other)
  Sender: FDA-Public Use
  Company Number: CH-ABBOTT-11P-151-0860112-00

PATIENT
  Age: 64 Year
  Sex: Male

DRUGS (1)
  1. LEUPROLIDE ACETATE [Suspect]
     Indication: PROSTATE CANCER
     Dosage: 1 DOSE

REACTIONS (3)
  - RHABDOMYOLYSIS [None]
  - RENAL FAILURE [None]
  - MYOPATHY [None]
